FAERS Safety Report 9472555 (Version 2)
Quarter: 2013Q4

REPORT INFORMATION
  Report Type: Spontaneous
  Country: US (occurrence: US)
  Receive Date: 20130823
  Receipt Date: 20131008
  Transmission Date: 20140711
  Serious: No
  Sender: FDA-Public Use
  Company Number: US-TEVA-428022USA

PATIENT
  Sex: Female

DRUGS (1)
  1. COPAXONE [Suspect]
     Indication: MULTIPLE SCLEROSIS

REACTIONS (4)
  - Back pain [Recovered/Resolved]
  - Nausea [Unknown]
  - Vomiting [Unknown]
  - Dizziness [Unknown]
